FAERS Safety Report 5865278-6 (Version None)
Quarter: 2008Q3

REPORT INFORMATION
  Report Type: 
  Country: None (occurrence: None)
  Receive Date: 20080829
  Receipt Date: 20080729
  Transmission Date: 20090109
  Serious: No
  Sender: FDA-Public Use
  Company Number: US-ABBOTT-08P-163-0466596-00

PATIENT
  Sex: Male
  Weight: 85.806 kg

DRUGS (5)
  1. SIMCOR [Suspect]
     Indication: HIGH DENSITY LIPOPROTEIN DECREASED
     Route: 048
     Dates: start: 20080710, end: 20080718
  2. SIMCOR [Suspect]
     Dosage: FORM: 500/20 MILLIGRAMS
     Route: 048
     Dates: start: 20080725, end: 20080727
  3. ATORVASTATIN CALCIUM [Concomitant]
     Indication: BLOOD CHOLESTEROL INCREASED
     Route: 048
  4. CLOPIDOGREL [Concomitant]
     Indication: CORONARY ARTERIAL STENT INSERTION
     Route: 048
  5. ACETYLSALICYLIC ACID SRT [Concomitant]
     Indication: CORONARY ARTERIAL STENT INSERTION
     Route: 048

REACTIONS (3)
  - DRY MOUTH [None]
  - DYSPHAGIA [None]
  - OROPHARYNGEAL PAIN [None]
